FAERS Safety Report 25255397 (Version 1)
Quarter: 2025Q2

REPORT INFORMATION
  Report Type: Spontaneous
  Country: US (occurrence: US)
  Receive Date: 20250430
  Receipt Date: 20250430
  Transmission Date: 20250717
  Serious: Yes (Other)
  Sender: BAYER HEALTHCARE LLC
  Company Number: US-BAYER-2025A055702

PATIENT

DRUGS (1)
  1. ALEVE [Suspect]
     Active Substance: NAPROXEN SODIUM

REACTIONS (11)
  - Blindness [Unknown]
  - Deafness [Unknown]
  - Swelling face [Unknown]
  - Lip swelling [Unknown]
  - Throat tightness [Unknown]
  - Urticaria [Unknown]
  - Erythema [Unknown]
  - Confusional state [Unknown]
  - Nausea [Unknown]
  - Blood pressure systolic decreased [None]
  - Palpitations [None]
